FAERS Safety Report 7951973-1 (Version None)
Quarter: 2011Q4

REPORT INFORMATION
  Report Type: 
  Country: None (occurrence: None)
  Receive Date: 20111201
  Receipt Date: 20111128
  Transmission Date: 20120403
  Serious: Yes (Death)
  Sender: FDA-Public Use
  Company Number: US-PFIZER INC-2011288935

PATIENT
  Sex: Male
  Weight: 63.492 kg

DRUGS (11)
  1. HYDROCODONE [Concomitant]
     Dosage: UNK
  2. PROCHLORPERAZINE [Concomitant]
     Dosage: UNK
  3. OMEPRAZOLE [Concomitant]
     Dosage: UNK
  4. FUROSEMIDE [Concomitant]
     Dosage: UNK
  5. NITROSTAT [Suspect]
     Dosage: UNK
  6. LORAZEPAM [Concomitant]
     Dosage: UNK
  7. MORPHINE [Concomitant]
     Dosage: UNK
  8. NIFEDICAL [Concomitant]
     Dosage: UNK
  9. GLIPIZIDE [Concomitant]
     Dosage: UNK
  10. SIMETHICONE [Suspect]
     Dosage: UNK
  11. SPIRONOLACTONE [Concomitant]
     Dosage: UNK

REACTIONS (1)
  - DEATH [None]
